FAERS Safety Report 17213906 (Version 1)
Quarter: 2019Q4

REPORT INFORMATION
  Report Type: Report from Study
  Country: CA (occurrence: CA)
  Receive Date: 20191230
  Receipt Date: 20191230
  Transmission Date: 20200122
  Serious: No
  Sender: FDA-Public Use
  Company Number: CA-BEH-2019110667

PATIENT
  Sex: Male

DRUGS (3)
  1. HIZENTRA [Suspect]
     Active Substance: HUMAN IMMUNOGLOBULIN G
     Indication: MYASTHENIA GRAVIS
     Dosage: 30 GRAM, QW
     Route: 058
     Dates: start: 20190516
  2. CALCIUM [Concomitant]
     Active Substance: CALCIUM
  3. CORTISONE [Concomitant]
     Active Substance: CORTISONE

REACTIONS (4)
  - Injection site bruising [Recovered/Resolved with Sequelae]
  - Product use in unapproved indication [Unknown]
  - Oesophageal motility disorder [Not Recovered/Not Resolved]
  - No adverse event [Unknown]

NARRATIVE: CASE EVENT DATE: 2019
